FAERS Safety Report 24217291 (Version 1)
Quarter: 2024Q3

REPORT INFORMATION
  Report Type: Spontaneous
  Country: CN (occurrence: None)
  Receive Date: 20240816
  Receipt Date: 20240816
  Transmission Date: 20241017
  Serious: Yes (Other)
  Sender: ASTRAZENECA
  Company Number: 2024A185834

PATIENT
  Age: 80 Year
  Sex: Female
  Weight: 50 kg

DRUGS (6)
  1. SEROQUEL [Suspect]
     Active Substance: QUETIAPINE FUMARATE
     Indication: Dementia of the Alzheimer^s type, with delusions
     Dosage: QN
     Route: 048
     Dates: start: 20240401, end: 20240628
  2. SEROQUEL [Suspect]
     Active Substance: QUETIAPINE FUMARATE
     Indication: Hallucination
     Dosage: QN
     Route: 048
     Dates: start: 20240401, end: 20240628
  3. SEROQUEL [Suspect]
     Active Substance: QUETIAPINE FUMARATE
     Indication: Dementia of the Alzheimer^s type, with delusions
     Dosage: QN
     Route: 048
     Dates: start: 20240628, end: 20240701
  4. SEROQUEL [Suspect]
     Active Substance: QUETIAPINE FUMARATE
     Indication: Hallucination
     Dosage: QN
     Route: 048
     Dates: start: 20240628, end: 20240701
  5. SEROQUEL [Suspect]
     Active Substance: QUETIAPINE FUMARATE
     Indication: Dementia of the Alzheimer^s type, with delusions
     Dosage: QN
     Route: 048
     Dates: start: 20240701, end: 20240702
  6. SEROQUEL [Suspect]
     Active Substance: QUETIAPINE FUMARATE
     Indication: Hallucination
     Dosage: QN
     Route: 048
     Dates: start: 20240701, end: 20240702

REACTIONS (2)
  - Electrocardiogram QT prolonged [Recovered/Resolved]
  - Off label use [Unknown]

NARRATIVE: CASE EVENT DATE: 20240628
